FAERS Safety Report 22119241 (Version 1)
Quarter: 2023Q1

REPORT INFORMATION
  Report Type: Spontaneous
  Country: US (occurrence: US)
  Receive Date: 20230321
  Receipt Date: 20230321
  Transmission Date: 20230418
  Serious: Yes (Hospitalization, Other)
  Sender: FDA-Public Use
  Company Number: US-SA-SAC20230320001503

PATIENT
  Sex: Female

DRUGS (8)
  1. ELOCTATE [Suspect]
     Active Substance: EFMOROCTOCOG ALFA
     Indication: Factor VIII deficiency
     Dosage: 850 U, (765-935) PRN FOR MINOR BLEED
     Route: 042
     Dates: start: 201303
  2. ELOCTATE [Suspect]
     Active Substance: EFMOROCTOCOG ALFA
     Indication: Factor VIII deficiency
     Dosage: 850 U, (765-935) PRN FOR MINOR BLEED
     Route: 042
     Dates: start: 201303
  3. ELOCTATE [Suspect]
     Active Substance: EFMOROCTOCOG ALFA
     Dosage: 1700 U,  (1530-1870) PRN FOR MAJOR BLEED
     Route: 042
     Dates: start: 201303
  4. ELOCTATE [Suspect]
     Active Substance: EFMOROCTOCOG ALFA
     Dosage: 1700 U,  (1530-1870) PRN FOR MAJOR BLEED
     Route: 042
     Dates: start: 201303
  5. ELOCTATE [Suspect]
     Active Substance: EFMOROCTOCOG ALFA
     Dosage: 1950 U, (1755-2145) QW ON FRIDAYS AS PART OF PROPHYLAXIS
     Route: 042
     Dates: start: 201303
  6. ELOCTATE [Suspect]
     Active Substance: EFMOROCTOCOG ALFA
     Dosage: 1950 U, (1755-2145) QW ON FRIDAYS AS PART OF PROPHYLAXIS
     Route: 042
     Dates: start: 201303
  7. ELOCTATE [Suspect]
     Active Substance: EFMOROCTOCOG ALFA
     Dosage: 1200 U, (1080-1320) TIW ON MONDAY AND WEDNESDAYS. PROPHYLAXIS
     Route: 042
     Dates: start: 201303
  8. ELOCTATE [Suspect]
     Active Substance: EFMOROCTOCOG ALFA
     Dosage: 1200 U, (1080-1320) TIW ON MONDAY AND WEDNESDAYS. PROPHYLAXIS
     Route: 042
     Dates: start: 201303

REACTIONS (1)
  - Haemorrhage [Unknown]
